FAERS Safety Report 11213793 (Version 1)
Quarter: 2015Q2

REPORT INFORMATION
  Report Type: Spontaneous
  Country: US (occurrence: US)
  Receive Date: 20150623
  Receipt Date: 20150623
  Transmission Date: 20150821
  Serious: No
  Sender: FDA-Public Use
  Company Number: US-MYLANLABS-2015M1011170

PATIENT
  Age: 73 Year
  Sex: Female

DRUGS (3)
  1. ALENDRONATE [Concomitant]
     Active Substance: ALENDRONATE SODIUM
     Indication: OSTEOPOROSIS
     Dosage: UNK
     Dates: start: 20150330
  2. PREDNISONE. [Concomitant]
     Active Substance: PREDNISONE
     Indication: ARTHRITIS
     Dosage: 20 MG, QD
  3. METHOTREXATE (METHOTREXATE SODIUM) [Suspect]
     Active Substance: METHOTREXATE SODIUM
     Indication: ARTHRITIS
     Dosage: 7.5 MG, QW
     Dates: start: 20150325

REACTIONS (1)
  - Reaction to drug excipients [Recovered/Resolved]

NARRATIVE: CASE EVENT DATE: 20150325
